FAERS Safety Report 7657485-7 (Version None)
Quarter: 2011Q3

REPORT INFORMATION
  Report Type: 
  Country: None (occurrence: None)
  Receive Date: 20110804
  Receipt Date: 20110728
  Transmission Date: 20111222
  Serious: Yes (Other)
  Sender: FDA-Public Use
  Company Number: US-US-EMD SERONO, INC.-7074068

PATIENT
  Sex: Female
  Weight: 68 kg

DRUGS (1)
  1. REBIF [Suspect]
     Indication: MULTIPLE SCLEROSIS
     Route: 058
     Dates: end: 20110701

REACTIONS (5)
  - PAIN IN EXTREMITY [None]
  - PROGRESSIVE MULTIPLE SCLEROSIS [None]
  - JUGULAR VEIN THROMBOSIS [None]
  - JOINT SWELLING [None]
  - MULTIPLE SCLEROSIS RELAPSE [None]
